FAERS Safety Report 4869602-2 (Version None)
Quarter: 2005Q4

REPORT INFORMATION
  Report Type: 
  Country: None (occurrence: None)
  Receive Date: 20051227
  Receipt Date: 20051213
  Transmission Date: 20060501
  Serious: Yes (Other)
  Sender: FDA-Public Use
  Company Number: 2005165056

PATIENT
  Age: 33 Year
  Sex: Female

DRUGS (1)
  1. LISTERINE      (MENTHOL, METHYL SALICYLATE, EUCALYPTOL, THYMOL) [Suspect]
     Indication: DENTAL DISORDER PROPHYLAXIS
     Dosage: 40ML DAILY, ORAL
     Route: 048
     Dates: start: 20020101

REACTIONS (6)
  - DIFFICULTY IN WALKING [None]
  - DRUG INEFFECTIVE [None]
  - LOWER LIMB FRACTURE [None]
  - OPEN FRACTURE [None]
  - ROAD TRAFFIC ACCIDENT [None]
  - WOUND [None]
